FAERS Safety Report 7890011-6 (Version None)
Quarter: 2011Q4

REPORT INFORMATION
  Report Type: 
  Country: None (occurrence: None)
  Receive Date: 20111103
  Receipt Date: 20111025
  Transmission Date: 20120403
  Serious: Yes (Other)
  Sender: FDA-Public Use
  Company Number: PHHY2010CA86853

PATIENT
  Sex: Female

DRUGS (3)
  1. SANDOSTATIN [Suspect]
     Dosage: 1.5 ML, TID
     Route: 058
  2. SANDOSTATIN LAR [Suspect]
     Indication: NEUROENDOCRINE TUMOUR
     Dosage: 40 MG, EVERY FOUR WEEKS
     Route: 030
     Dates: start: 20101220
  3. SANDOSTATIN [Suspect]
     Indication: NEUROENDOCRINE TUMOUR
     Dosage: 1 ML, TID
     Route: 058
     Dates: start: 20100401

REACTIONS (7)
  - NEOPLASM MALIGNANT [None]
  - ABDOMINAL PAIN [None]
  - ALOPECIA [None]
  - PAIN [None]
  - MALAISE [None]
  - ABDOMINAL DISTENSION [None]
  - CONSTIPATION [None]
